FAERS Safety Report 9984376 (Version 2)
Quarter: 2014Q1

REPORT INFORMATION
  Report Type: Report from Study
  Country: US (occurrence: US)
  Receive Date: 20140307
  Receipt Date: 20140307
  Transmission Date: 20141002
  Serious: Yes (Other)
  Sender: FDA-Public Use
  Company Number: US-ABBVIE-13P-163-1182802-00

PATIENT
  Age: 57 Year
  Sex: Female

DRUGS (6)
  1. HUMIRA [Suspect]
     Indication: RHEUMATOID ARTHRITIS
     Dates: start: 20121003
  2. METHOTREXATE [Suspect]
     Dosage: 4 PILLS, 2 DAYS EACH WEEK
  3. METHOTREXATE [Suspect]
     Dosage: 3 PILLS, 2 DAYS EACH WEEK
  4. MELOXICAM [Concomitant]
     Indication: RHEUMATOID ARTHRITIS
  5. FOLIC ACID [Concomitant]
  6. FOLIC ACID [Concomitant]

REACTIONS (5)
  - Knee arthroplasty [Not Recovered/Not Resolved]
  - Injection site pain [Unknown]
  - Injection site pain [Unknown]
  - Injection site bruising [Unknown]
  - Nasal ulcer [Unknown]
